FAERS Safety Report 23515140 (Version 3)
Quarter: 2025Q3

REPORT INFORMATION
  Report Type: Spontaneous
  Country: EU (occurrence: EU)
  Receive Date: 20240213
  Receipt Date: 20250710
  Transmission Date: 20251021
  Serious: Yes (Hospitalization)
  Sender: JOHNSON AND JOHNSON
  Company Number: EU-009507513-2301GRC010775

PATIENT
  Age: 87 Year
  Sex: Male
  Weight: 77.5 kg

DRUGS (18)
  1. XARELTO [Suspect]
     Active Substance: RIVAROXABAN
     Indication: Pulmonary embolism
     Dosage: 20 MG, QD
     Route: 048
     Dates: start: 202101, end: 20230126
  2. METFORMIN HYDROCHLORIDE [Concomitant]
     Active Substance: METFORMIN HYDROCHLORIDE
     Indication: Cardiac failure
     Dosage: DOSE DESCRIPTION : 1000 MILLIGRAM, BIDDAILY DOSE : 2000 MILLIGRAM CONCENTRATION: 1000 MILLIGRAM
     Route: 048
     Dates: start: 202202
  3. DAPAGLIFLOZIN PROPANEDIOL [Concomitant]
     Active Substance: DAPAGLIFLOZIN PROPANEDIOL
     Indication: Cardiac failure
     Dosage: 5 MG, BID
     Route: 048
     Dates: start: 202209
  4. DAPAGLIFLOZIN PROPANEDIOL [Concomitant]
     Active Substance: DAPAGLIFLOZIN PROPANEDIOL
     Dosage: DOSE DESCRIPTION : 5 MILLIGRAM, BIDDAILY DOSE : 10 MILLIGRAM CONCENTRATION: 5 MILLIGRAM
     Route: 048
     Dates: start: 202202
  5. INDERAL [Concomitant]
     Active Substance: PROPRANOLOL HYDROCHLORIDE
     Indication: Cardiac failure
     Dosage: DOSE DESCRIPTION : 40 MILLIGRAM, BIDDAILY DOSE : 80 MILLIGRAM CONCENTRATION: 40 MILLIGRAM
     Route: 048
     Dates: start: 202110, end: 20230206
  6. INSPRA [Concomitant]
     Active Substance: EPLERENONE
     Indication: Cardiac failure
     Dosage: DOSE DESCRIPTION : 50 MILLIGRAM, QDDAILY DOSE : 50 MILLIGRAM CONCENTRATION: 50 MILLIGRAM
     Route: 048
     Dates: start: 201711
  7. DIGOXIN [Concomitant]
     Active Substance: DIGOXIN
     Indication: Cardiac failure
     Dosage: 0.25 MG, QD
     Route: 048
     Dates: start: 202012
  8. DIGOXIN [Concomitant]
     Active Substance: DIGOXIN
     Dosage: DOSE DESCRIPTION : 0.25 MILLIGRAM, QDDAILY DOSE : 0.25 MILLIGRAM CONCENTRATION: 0.25 MILLIGRAM
     Route: 048
     Dates: start: 202012
  9. LASIX [Concomitant]
     Active Substance: FUROSEMIDE
     Indication: Cardiac failure
     Dosage: DOSE DESCRIPTION : 40 MILLIGRAM, QDDAILY DOSE : 40 MILLIGRAM CONCENTRATION: 40 MILLIGRAM REGIMEN DOS
     Route: 048
     Dates: start: 20160201, end: 20230206
  10. LASIX [Concomitant]
     Active Substance: FUROSEMIDE
     Indication: Cardiac failure
  11. ZOLPIDEM TARTRATE [Concomitant]
     Active Substance: ZOLPIDEM TARTRATE
     Indication: Anxiety
     Dosage: DOSE DESCRIPTION : 5 MILLIGRAM, QDDAILY DOSE : 5 MILLIGRAM CONCENTRATION: 5 MILLIGRAM
     Route: 048
     Dates: start: 202008
  12. ZOLPIDEM TARTRATE [Concomitant]
     Active Substance: ZOLPIDEM TARTRATE
     Indication: Anxiety
  13. BENSERAZIDE HYDROCHLORIDE\LEVODOPA [Concomitant]
     Active Substance: BENSERAZIDE HYDROCHLORIDE\LEVODOPA
     Indication: Parkinson^s disease
     Dosage: DOSE DESCRIPTION : 500 MILLIGRAM, QDDAILY DOSE : 500 MILLIGRAM CONCENTRATION: 250 MILLIGRAM
     Route: 048
     Dates: start: 201106
  14. BENSERAZIDE HYDROCHLORIDE\LEVODOPA [Concomitant]
     Active Substance: BENSERAZIDE HYDROCHLORIDE\LEVODOPA
     Indication: Parkinson^s disease
  15. PRAMIPEXOLE [Concomitant]
     Active Substance: PRAMIPEXOLE
     Indication: Parkinson^s disease
     Dosage: 0.45 MG, QD
     Route: 048
     Dates: start: 201106
  16. PRAMIPEXOLE [Concomitant]
     Active Substance: PRAMIPEXOLE
     Indication: Parkinson^s disease
     Dosage: DOSE DESCRIPTION : 0.45 MILLIGRAM, QDDAILY DOSE : 0.45 MILLIGRAM CONCENTRATION: 0.18 MILLIGRAM
     Route: 048
     Dates: start: 201106
  17. ALLOPURINOL [Concomitant]
     Active Substance: ALLOPURINOL
     Indication: Hyperuricaemia
     Dosage: DOSE DESCRIPTION : 300 MILLIGRAM, QDDAILY DOSE : 300 MILLIGRAM CONCENTRATION: 300 MILLIGRAM
     Route: 048
     Dates: start: 202204
  18. ALLOPURINOL [Concomitant]
     Active Substance: ALLOPURINOL
     Indication: Hyperuricaemia

REACTIONS (3)
  - Gastrointestinal haemorrhage [Recovered/Resolved]
  - Diverticulitis [Recovered/Resolved]
  - Anaemia [Recovered/Resolved]

NARRATIVE: CASE EVENT DATE: 20230126
